FAERS Safety Report 18167511 (Version 3)
Quarter: 2021Q2

REPORT INFORMATION
  Report Type: Spontaneous
  Country: US (occurrence: US)
  Receive Date: 20200819
  Receipt Date: 20210625
  Transmission Date: 20210717
  Serious: Yes (Other)
  Sender: FDA-Public Use
  Company Number: US-GLAXOSMITHKLINE-US2020163878

PATIENT
  Sex: Male

DRUGS (5)
  1. RANITIDINE. [Suspect]
     Active Substance: RANITIDINE
     Indication: ABDOMINAL DISCOMFORT
     Dosage: 300 MG, QD
     Route: 065
     Dates: start: 201304, end: 201906
  2. ZANTAC [Suspect]
     Active Substance: RANITIDINE HYDROCHLORIDE
     Dates: start: 20130115, end: 20190115
  3. RANITIDINE. [Suspect]
     Active Substance: RANITIDINE
     Indication: ABDOMINAL DISCOMFORT
     Dosage: 300 MG, QD
     Route: 065
     Dates: start: 201304, end: 201906
  4. RANITIDINE. [Suspect]
     Active Substance: RANITIDINE
     Indication: GASTROOESOPHAGEAL REFLUX DISEASE
  5. RANITIDINE. [Suspect]
     Active Substance: RANITIDINE
     Indication: GASTROOESOPHAGEAL REFLUX DISEASE

REACTIONS (2)
  - Prostatic disorder [Unknown]
  - Renal cancer [Unknown]
